FAERS Safety Report 8998339 (Version 1)
Quarter: 2013Q1

REPORT INFORMATION
  Report Type: Spontaneous
  Country: US (occurrence: US)
  Receive Date: 20130105
  Receipt Date: 20130105
  Transmission Date: 20140127
  Serious: No
  Sender: FDA-Public Use
  Company Number: US-009507513-1212USA008749

PATIENT
  Age: 16 Year
  Sex: Female

DRUGS (1)
  1. IMPLANON [Suspect]

REACTIONS (2)
  - Nuclear magnetic resonance imaging [Unknown]
  - Neck pain [Unknown]
